FAERS Safety Report 25082924 (Version 3)
Quarter: 2025Q2

REPORT INFORMATION
  Report Type: Report from Study
  Country: US (occurrence: US)
  Receive Date: 20250317
  Receipt Date: 20250513
  Transmission Date: 20250716
  Serious: Yes (Other)
  Sender: ABBVIE
  Company Number: US-ABBVIE-6177765

PATIENT
  Age: 89 Year
  Sex: Female

DRUGS (2)
  1. VENCLEXTA [Suspect]
     Active Substance: VENETOCLAX
     Indication: Acute myeloid leukaemia recurrent
     Route: 048
     Dates: start: 202502, end: 202504
  2. VENCLEXTA [Suspect]
     Active Substance: VENETOCLAX
     Indication: Acute myeloid leukaemia recurrent
     Route: 048
     Dates: start: 20250505

REACTIONS (5)
  - Hypotension [Unknown]
  - Haemoglobin decreased [Unknown]
  - Asthenia [Unknown]
  - Fall [Unknown]
  - Night sweats [Unknown]

NARRATIVE: CASE EVENT DATE: 20250101
